FAERS Safety Report 16252443 (Version 2)
Quarter: 2019Q2

REPORT INFORMATION
  Report Type: Report from Study
  Country: JP (occurrence: JP)
  Receive Date: 20190429
  Receipt Date: 20190514
  Transmission Date: 20190711
  Serious: Yes (Death, Hospitalization, Other)
  Sender: FDA-Public Use
  Company Number: JP-BRISTOL-MYERS SQUIBB COMPANY-BMS-2019-021420

PATIENT
  Age: 58 Year
  Sex: Male
  Weight: 61.5 kg

DRUGS (1)
  1. NIVOLUMAB [Suspect]
     Active Substance: NIVOLUMAB
     Indication: GASTRIC CANCER
     Dosage: 170 MILLIGRAM
     Route: 041
     Dates: start: 20180817, end: 20181030

REACTIONS (5)
  - Blood alkaline phosphatase increased [Not Recovered/Not Resolved]
  - Aspartate aminotransferase increased [Not Recovered/Not Resolved]
  - Lung infection [Fatal]
  - Alanine aminotransferase increased [Not Recovered/Not Resolved]
  - Cholangitis [Fatal]

NARRATIVE: CASE EVENT DATE: 20181030
